FAERS Safety Report 8511098-3 (Version None)
Quarter: 2012Q3

REPORT INFORMATION
  Report Type: 
  Country: None (occurrence: None)
  Receive Date: 20120705
  Receipt Date: 20120619
  Transmission Date: 20120928
  Serious: Yes (Other)
  Sender: FDA-Public Use
  Company Number: TPA2012A04075

PATIENT
  Age: 54 Year
  Sex: Male

DRUGS (1)
  1. ACTOS [Suspect]

REACTIONS (1)
  - BLOOD GLUCOSE INCREASED [None]
